FAERS Safety Report 16559089 (Version 1)
Quarter: 2019Q3

REPORT INFORMATION
  Report Type: Spontaneous
  Country: US (occurrence: US)
  Receive Date: 20190710
  Receipt Date: 20190710
  Transmission Date: 20191004
  Serious: Yes (Other)
  Sender: FDA-Public Use
  Company Number: None

PATIENT
  Age: 32 Year
  Sex: Female
  Weight: 49.5 kg

DRUGS (8)
  1. SPIRONOLACTONE. [Concomitant]
     Active Substance: SPIRONOLACTONE
  2. XYREM [Suspect]
     Active Substance: SODIUM OXYBATE
     Indication: NARCOLEPSY
     Dosage: ?          QUANTITY:4.5 GRAMS;OTHER FREQUENCY:1, 2-4HR LATER;?
     Route: 048
  3. DEXEDRINE [Concomitant]
     Active Substance: DEXTROAMPHETAMINE SULFATE
  4. XYREM [Concomitant]
     Active Substance: SODIUM OXYBATE
  5. FETZIMA [Concomitant]
     Active Substance: LEVOMILNACIPRAN HYDROCHLORIDE
  6. TITANIUM. [Concomitant]
     Active Substance: TITANIUM
  7. XYREM [Suspect]
     Active Substance: SODIUM OXYBATE
     Indication: CATAPLEXY
     Dosage: ?          QUANTITY:4.5 GRAMS;OTHER FREQUENCY:1, 2-4HR LATER;?
     Route: 048
  8. CELEXA [Concomitant]
     Active Substance: CITALOPRAM HYDROBROMIDE

REACTIONS (4)
  - Dental caries [None]
  - Tooth resorption [None]
  - Toothache [None]
  - Tooth disorder [None]

NARRATIVE: CASE EVENT DATE: 20131101
